FAERS Safety Report 17325797 (Version 5)
Quarter: 2020Q1

REPORT INFORMATION
  Report Type: Spontaneous
  Country: US (occurrence: US)
  Receive Date: 20200127
  Receipt Date: 20200319
  Transmission Date: 20200409
  Serious: Yes (Hospitalization, Other)
  Sender: FDA-Public Use
  Company Number: US-PFIZER INC-2020038072

PATIENT
  Age: 64 Year
  Sex: Female

DRUGS (4)
  1. IBRANCE [Suspect]
     Active Substance: PALBOCICLIB
     Dosage: 125 MG, 1X/DAY
     Route: 048
     Dates: start: 20191121, end: 20191219
  2. ARIMIDEX [Concomitant]
     Active Substance: ANASTROZOLE
     Dosage: UNK
  3. IBRANCE [Suspect]
     Active Substance: PALBOCICLIB
     Dosage: 125 MG, 1X/DAY
     Route: 048
     Dates: start: 20200103, end: 20200227
  4. IBRANCE [Suspect]
     Active Substance: PALBOCICLIB
     Indication: BREAST CANCER METASTATIC
     Dosage: 125 MG, CYCLIC (DAILY X21 DAYS, EVERY 28 DAYS)
     Route: 048
     Dates: start: 20191123

REACTIONS (12)
  - Pulmonary oedema [Unknown]
  - Blood albumin decreased [Unknown]
  - Cardiac failure congestive [Recovered/Resolved with Sequelae]
  - Leukopenia [Unknown]
  - Neoplasm progression [Unknown]
  - Pericardial effusion [Unknown]
  - Dehydration [Unknown]
  - Mucosal inflammation [Recovered/Resolved with Sequelae]
  - Blood potassium decreased [Unknown]
  - Anaemia [Unknown]
  - Oral pain [Recovered/Resolved]
  - Sepsis [Unknown]

NARRATIVE: CASE EVENT DATE: 20191219
